FAERS Safety Report 7548034-2 (Version None)
Quarter: 2011Q2

REPORT INFORMATION
  Report Type: 
  Country: None (occurrence: None)
  Receive Date: 20110615
  Receipt Date: 20110531
  Transmission Date: 20111010
  Serious: Yes (Other)
  Sender: FDA-Public Use
  Company Number: US-JNJFOC-20110600984

PATIENT
  Sex: Male
  Weight: 62.14 kg

DRUGS (2)
  1. REMICADE [Suspect]
     Indication: ANKYLOSING SPONDYLITIS
     Route: 042
     Dates: start: 20100101
  2. MANY OTHER UNSPECIFIED MEDICATIONS [Concomitant]
     Route: 065

REACTIONS (9)
  - NAUSEA [None]
  - CHEST DISCOMFORT [None]
  - DIZZINESS [None]
  - BODY HEIGHT DECREASED [None]
  - HYPERHIDROSIS [None]
  - FEELING HOT [None]
  - FEELING COLD [None]
  - INFUSION RELATED REACTION [None]
  - DYSPNOEA [None]
